FAERS Safety Report 13195559 (Version 1)
Quarter: 2017Q1

REPORT INFORMATION
  Report Type: Spontaneous
  Country: US (occurrence: US)
  Receive Date: 20170208
  Receipt Date: 20170208
  Transmission Date: 20170428
  Serious: Yes (Other)
  Sender: FDA-Public Use
  Company Number: US-BEH-2017077780

PATIENT
  Age: 7 Year
  Sex: Female
  Weight: 17.42 kg

DRUGS (7)
  1. MVI [Concomitant]
     Active Substance: VITAMINS
     Route: 048
  2. HUMATE-P [Suspect]
     Active Substance: HUMAN COAGULATION FACTOR VIII/VON WILLEBRAND FACTOR COMPLEX
     Indication: VON WILLEBRAND^S DISEASE
     Dosage: UNK
     Route: 065
  3. AMICAR [Concomitant]
     Active Substance: AMINOCAPROIC ACID
     Dosage: 2 ML, Q6H FOR 7 DAYS
     Route: 048
     Dates: start: 20170129
  4. HUMATE-P [Suspect]
     Active Substance: HUMAN COAGULATION FACTOR VIII/VON WILLEBRAND FACTOR COMPLEX
     Indication: PROPHYLAXIS
     Dosage: 1000 IU, UNK
     Route: 065
     Dates: start: 20150211
  5. FERROUS SULFATE. [Concomitant]
     Active Substance: FERROUS SULFATE
     Route: 065
  6. STIMATE                            /00361902/ [Concomitant]
     Dosage: AS DIRECTED
     Route: 045
  7. HUMATE-P [Suspect]
     Active Substance: HUMAN COAGULATION FACTOR VIII/VON WILLEBRAND FACTOR COMPLEX
     Dosage: 1000 IU, PRN
     Route: 065
     Dates: start: 20150211

REACTIONS (1)
  - Melaena [Recovered/Resolved]

NARRATIVE: CASE EVENT DATE: 20170130
